FAERS Safety Report 26005428 (Version 1)
Quarter: 2025Q4

REPORT INFORMATION
  Report Type: Report from Study
  Country: EU (occurrence: EU)
  Receive Date: 20251106
  Receipt Date: 20251106
  Transmission Date: 20260118
  Serious: Yes (Hospitalization, Other)
  Sender: JOHNSON AND JOHNSON
  Company Number: EU-JNJFOC-20251038108

PATIENT

DRUGS (1)
  1. GOLIMUMAB [Suspect]
     Active Substance: GOLIMUMAB
     Indication: Colitis ulcerative
     Route: 058

REACTIONS (7)
  - Hospitalisation [Unknown]
  - Colectomy [Unknown]
  - Appendicectomy [Unknown]
  - Intestinal haemorrhage [Unknown]
  - Polyp [Unknown]
  - Pneumonia [Unknown]
  - Adverse event [Unknown]
